FAERS Safety Report 23595662 (Version 2)
Quarter: 2024Q1

REPORT INFORMATION
  Report Type: Spontaneous
  Country: IL (occurrence: IL)
  Receive Date: 20240305
  Receipt Date: 20240320
  Transmission Date: 20240409
  Serious: Yes (Life-Threatening, Hospitalization, Other)
  Sender: FDA-Public Use
  Company Number: IL-ASTELLAS-2024EU001905

PATIENT
  Age: 39 Year
  Sex: Female

DRUGS (4)
  1. TACROLIMUS [Suspect]
     Active Substance: TACROLIMUS
     Indication: Renal transplant
     Dosage: UNK UNK, UNKNOWN FREQ.
     Route: 065
  2. MYCOPHENOLATE MOFETIL [Concomitant]
     Active Substance: MYCOPHENOLATE MOFETIL
     Indication: Renal transplant
     Dosage: UNK UNK, UNKNOWN FREQ.
     Route: 065
  3. VALGANCICLOVIR [Concomitant]
     Active Substance: VALGANCICLOVIR
     Indication: Infection prophylaxis
     Dosage: UNK UNK, UNKNOWN FREQ.
     Route: 065
  4. SULFAMETHOXAZOLE\TRIMETHOPRIM [Concomitant]
     Active Substance: SULFAMETHOXAZOLE\TRIMETHOPRIM
     Indication: Infection prophylaxis
     Dosage: UNK UNK, UNKNOWN FREQ.
     Route: 065

REACTIONS (11)
  - Disseminated aspergillosis [Unknown]
  - Abdominal infection [Unknown]
  - Arteritis infective [Recovering/Resolving]
  - Graft haemorrhage [Recovered/Resolved]
  - Peripheral ischaemia [Recovered/Resolved]
  - Graft loss [Not Recovered/Not Resolved]
  - Klebsiella infection [Unknown]
  - Pathogen resistance [Unknown]
  - Escherichia infection [Unknown]
  - Enterococcal infection [Unknown]
  - Stenotrophomonas infection [Unknown]
